FAERS Safety Report 5867369-2 (Version None)
Quarter: 2008Q3

REPORT INFORMATION
  Report Type: 
  Country: None (occurrence: None)
  Receive Date: 20080902
  Receipt Date: 20080825
  Transmission Date: 20090109
  Serious: Yes (Other)
  Sender: FDA-Public Use
  Company Number: PHEH2008US02880

PATIENT
  Sex: Male

DRUGS (2)
  1. AREDIA [Suspect]
     Dosage: 90 MG, QMONTH
     Dates: start: 19990701, end: 20011001
  2. ZOMETA [Suspect]
     Indication: OSTEOPENIA
     Dosage: 4 MG, QMONTH
     Route: 042
     Dates: start: 20011101, end: 20061001

REACTIONS (9)
  - BONE DISORDER [None]
  - BONE FRAGMENTATION [None]
  - BONE GRAFT [None]
  - DENTAL IMPLANTATION [None]
  - LOOSE TOOTH [None]
  - ORAL DISORDER [None]
  - ORAL SURGERY [None]
  - OSTEONECROSIS [None]
  - TOOTH EXTRACTION [None]
